FAERS Safety Report 24268186 (Version 1)
Quarter: 2024Q3

REPORT INFORMATION
  Report Type: Spontaneous
  Country: BE (occurrence: None)
  Receive Date: 20240830
  Receipt Date: 20240830
  Transmission Date: 20241017
  Serious: Yes (Other)
  Sender: ASTRAZENECA
  Company Number: 2024A165656

PATIENT

DRUGS (1)
  1. LYNPARZA [Suspect]
     Active Substance: OLAPARIB
     Indication: Non-small cell lung cancer
     Route: 048

REACTIONS (4)
  - Respiratory failure [Unknown]
  - COVID-19 [Unknown]
  - Therapy cessation [Unknown]
  - Off label use [Unknown]
